FAERS Safety Report 7463729-7 (Version None)
Quarter: 2011Q2

REPORT INFORMATION
  Report Type: 
  Country: None (occurrence: None)
  Receive Date: 20110506
  Receipt Date: 20110322
  Transmission Date: 20111010
  Serious: No
  Sender: FDA-Public Use
  Company Number: US-BAYER-201039261NA

PATIENT
  Age: 23 Year
  Sex: Female
  Weight: 50.34 kg

DRUGS (3)
  1. NAPROXEN (ALEVE) [Concomitant]
  2. ASPIRIN [Concomitant]
  3. YASMIN [Suspect]
     Indication: PRODUCT USED FOR UNKNOWN INDICATION
     Dosage: UNK
     Dates: start: 20020101, end: 20090101

REACTIONS (4)
  - PAIN IN EXTREMITY [None]
  - OEDEMA PERIPHERAL [None]
  - PAIN [None]
  - THROMBOPHLEBITIS SUPERFICIAL [None]
